FAERS Safety Report 5015563-5 (Version None)
Quarter: 2006Q2

REPORT INFORMATION
  Report Type: 
  Country: None (occurrence: None)
  Receive Date: 20060526
  Receipt Date: 20060314
  Transmission Date: 20061013
  Serious: Yes (Death)
  Sender: FDA-Public Use
  Company Number: T200600492

PATIENT
  Age: 43 Year

DRUGS (3)
  1. PROPOXYPHENE / APAP (PROPROXYPHENE NAPSYLATE, ACETAMINOPHEN) TABLET, 1 [Suspect]
  2. CYCLOBENZAPRINE (CYCLOPBENZAPRINE) [Suspect]
  3. MIRTAZAPINE [Suspect]

REACTIONS (3)
  - CARDIAC ARREST [None]
  - COMPLETED SUICIDE [None]
  - RESPIRATORY ARREST [None]
